FAERS Safety Report 4712013-0 (Version None)
Quarter: 2005Q3

REPORT INFORMATION
  Report Type: 
  Country: None (occurrence: None)
  Receive Date: 20050711
  Receipt Date: 20050711
  Transmission Date: 20060218
  Serious: Yes (Life-Threatening, Hospitalization)
  Sender: FDA-Public Use
  Company Number: None

PATIENT
  Age: 33 Year
  Sex: Female
  Weight: 89.8122 kg

DRUGS (1)
  1. NEURONTIN [Suspect]
     Indication: RADICULOPATHY
     Dosage: 300MG   3 TIMES A DAY   ORAL
     Route: 048
     Dates: start: 20040717, end: 20050709

REACTIONS (7)
  - ASTHENIA [None]
  - CONVULSION [None]
  - DYSKINESIA [None]
  - FALL [None]
  - HEAD INJURY [None]
  - PARAESTHESIA [None]
  - SPEECH DISORDER [None]
